FAERS Safety Report 16695034 (Version 2)
Quarter: 2020Q4

REPORT INFORMATION
  Report Type: Report from Study
  Country: None (occurrence: US)
  Receive Date: 20190812
  Receipt Date: 20201231
  Transmission Date: 20210113
  Serious: Yes (Death)
  Sender: FDA-Public Use
  Company Number: US-ABBVIE-19K-163-2885722-00

PATIENT
  Age: 83 Year
  Sex: Male

DRUGS (4)
  1. VENCLEXTA [Suspect]
     Active Substance: VENETOCLAX
     Dosage: DAY TWO, TAKE TWO TABLETS BY MOUTH
     Route: 048
     Dates: start: 2019, end: 2019
  2. VENCLEXTA [Suspect]
     Active Substance: VENETOCLAX
     Dosage: DAY THREE, TAKE FOUR TABLETS BY MOUTH
     Route: 048
     Dates: start: 2019, end: 2019
  3. VENCLEXTA [Suspect]
     Active Substance: VENETOCLAX
     Indication: ACUTE LYMPHOCYTIC LEUKAEMIA
     Dosage: DAY ONE, TAKE ONE TABLET BY MOUTH
     Route: 048
     Dates: start: 201901, end: 2019
  4. VENCLEXTA [Suspect]
     Active Substance: VENETOCLAX
     Dosage: DAY FOUR AND THEREAFTER
     Route: 048
     Dates: start: 201901, end: 2019

REACTIONS (2)
  - Off label use [Unknown]
  - Death [Fatal]

NARRATIVE: CASE EVENT DATE: 20190728
